FAERS Safety Report 8963306 (Version 3)
Quarter: 2013Q1

REPORT INFORMATION
  Report Type: Spontaneous
  Country: US (occurrence: US)
  Receive Date: 20121213
  Receipt Date: 20130215
  Transmission Date: 20140127
  Serious: Yes (Hospitalization, Other)
  Sender: FDA-Public Use
  Company Number: US-PFIZER INC-2012315071

PATIENT
  Age: 48 Year
  Sex: Female

DRUGS (3)
  1. EFFEXOR XR [Suspect]
     Indication: DEPRESSION
     Dosage: 150 MG, 2X/DAY
     Route: 048
  2. BUPRENORPHINE [Concomitant]
     Indication: DRUG DEPENDENCE
     Dosage: 8 MG, 2 1/2 DAILY
  3. XANAX [Concomitant]
     Indication: ANXIETY
     Dosage: 1 MG, 3X/DAY

REACTIONS (2)
  - Mental disorder [Recovered/Resolved]
  - Impaired work ability [Recovered/Resolved]
